FAERS Safety Report 24013571 (Version 1)
Quarter: 2024Q2

REPORT INFORMATION
  Report Type: Spontaneous
  Country: DE (occurrence: DE)
  Receive Date: 20240626
  Receipt Date: 20240626
  Transmission Date: 20240716
  Serious: Yes (Hospitalization, Other)
  Sender: FDA-Public Use
  Company Number: DE-AMNEAL PHARMACEUTICALS-2024-AMRX-02298

PATIENT

DRUGS (5)
  1. ONGENTYS [Suspect]
     Active Substance: OPICAPONE
     Indication: Product used for unknown indication
     Dosage: UNK, QD (AT 08:00 P.M.)
     Route: 065
  2. BENSERAZIDE HYDROCHLORIDE\LEVODOPA [Concomitant]
     Active Substance: BENSERAZIDE HYDROCHLORIDE\LEVODOPA
     Indication: Product used for unknown indication
     Dosage: 2 DOSAGE FORMS, EVERY 3 HOURS
     Route: 065
  3. APOMORPHINE [Concomitant]
     Active Substance: APOMORPHINE
     Indication: Product used for unknown indication
     Dosage: PUMP, UNK
     Route: 065
  4. APOMORPHINE [Concomitant]
     Active Substance: APOMORPHINE
     Dosage: PUMP, 5 MG EVERY HOUR
     Route: 065
  5. LEVODOPA [Concomitant]
     Active Substance: LEVODOPA
     Indication: Product used for unknown indication
     Dosage: TWICE DAILY (AT 10:00 P.M. AND 02:00 A.M.)
     Route: 065

REACTIONS (3)
  - Delirium [Unknown]
  - Self-destructive behaviour [Unknown]
  - Hallucination [Unknown]
